FAERS Safety Report 7650156-2 (Version None)
Quarter: 2011Q3

REPORT INFORMATION
  Report Type: 
  Country: None (occurrence: None)
  Receive Date: 20110802
  Receipt Date: 20100118
  Transmission Date: 20111222
  Serious: Yes (Hospitalization, Other)
  Sender: FDA-Public Use
  Company Number: US-AMGEN-USASP2011038510

PATIENT
  Sex: Male

DRUGS (3)
  1. CORTICOSTEROIDS [Concomitant]
  2. PREDNISONE TAB [Concomitant]
     Dosage: UNK
  3. NPLATE [Suspect]
     Indication: IDIOPATHIC THROMBOCYTOPENIC PURPURA
     Dosage: 140 A?G, UNK
     Dates: start: 20090320, end: 20090903

REACTIONS (3)
  - HOSPITALISATION [None]
  - COLON CANCER [None]
  - THROMBOCYTOPENIA [None]
